FAERS Safety Report 5934232-8 (Version None)
Quarter: 2008Q4

REPORT INFORMATION
  Report Type: 
  Country: None (occurrence: None)
  Receive Date: 20081028
  Receipt Date: 20081028
  Transmission Date: 20090506
  Serious: Yes (Life-Threatening)
  Sender: FDA-Public Use
  Company Number: None

PATIENT
  Sex: Female
  Weight: 113.3993 kg

DRUGS (2)
  1. LIPITOR [Suspect]
     Indication: BLOOD CHOLESTEROL INCREASED
     Dosage: 20MG 20MG @ BEDTIME
     Dates: start: 20060101, end: 20060715
  2. ZOCOR [Suspect]
     Indication: BLOOD CHOLESTEROL INCREASED
     Dosage: 40MG @ BEDTIME
     Dates: start: 20060716, end: 20080915

REACTIONS (10)
  - AMNESIA [None]
  - CHEST PAIN [None]
  - HYPOAESTHESIA [None]
  - MYALGIA [None]
  - NECK PAIN [None]
  - NERVE INJURY [None]
  - PAIN IN EXTREMITY [None]
  - PARAESTHESIA [None]
  - VISION BLURRED [None]
  - WEIGHT INCREASED [None]
